FAERS Safety Report 10180642 (Version 2)
Quarter: 2014Q2

REPORT INFORMATION
  Report Type: Spontaneous
  Country: US (occurrence: US)
  Receive Date: 20140519
  Receipt Date: 20140519
  Transmission Date: 20141212
  Serious: No
  Sender: FDA-Public Use
  Company Number: US-AMGEN INC.-USASP2014017995

PATIENT
  Age: 70 Year
  Sex: Female
  Weight: 57.14 kg

DRUGS (7)
  1. PROLIA [Suspect]
     Indication: OSTEOPOROSIS POSTMENOPAUSAL
     Dosage: 60 MG, Q6MO
     Route: 058
     Dates: start: 20140225, end: 20140311
  2. HEXAL [Concomitant]
     Indication: OSTEOARTHRITIS
     Dosage: 10 MG, TID
     Route: 048
  3. SYNTHROID [Concomitant]
     Indication: HYPOTHYROIDISM
     Dosage: 0.075 MG, UNK
     Route: 048
  4. ATENOLOL [Concomitant]
     Indication: SUPRAVENTRICULAR TACHYCARDIA
     Dosage: 25 MG, UNK
     Route: 048
  5. ASPIRIN [Concomitant]
     Indication: SUPRAVENTRICULAR TACHYCARDIA
     Dosage: 81 MG, UNK
     Route: 048
  6. NORCO [Concomitant]
     Indication: OSTEOARTHRITIS
     Dosage: UNK UNK, TID
     Route: 048
  7. FLEXERIL                           /00428402/ [Concomitant]
     Indication: ARTHRALGIA

REACTIONS (1)
  - Arthralgia [Recovering/Resolving]
